FAERS Safety Report 10955647 (Version 1)
Quarter: 2015Q1

REPORT INFORMATION
  Report Type: Spontaneous
  Country: US (occurrence: None)
  Receive Date: 20150324
  Receipt Date: 20150324
  Transmission Date: 20150721
  Serious: Yes (Hospitalization)
  Sender: FDA-Public Use
  Company Number: 20150154

PATIENT
  Age: 67 Year
  Sex: Male

DRUGS (2)
  1. ATROPINE SULFATE. [Suspect]
     Active Substance: ATROPINE SULFATE
     Indication: CARDIAC STRESS TEST
     Dosage: DOSE NOT PROVIDED
  2. DOBUTAMINE [Suspect]
     Active Substance: DOBUTAMINE\DOBUTAMINE HYDROCHLORIDE
     Indication: CARDIAC STRESS TEST
     Dosage: DOSE NOT PROVIDED

REACTIONS (7)
  - Dysphagia [None]
  - Hallucination [None]
  - Confusional state [None]
  - Post procedural complication [None]
  - Encephalopathy [None]
  - Oropharyngeal discomfort [None]
  - Dry mouth [None]
